FAERS Safety Report 7251793-X (Version None)
Quarter: 2011Q1

REPORT INFORMATION
  Report Type: 
  Country: None (occurrence: None)
  Receive Date: 20110128
  Receipt Date: 20100115
  Transmission Date: 20110831
  Serious: No
  Sender: FDA-Public Use
  Company Number: US-ABBOTT-10P-163-0620526-00

PATIENT
  Sex: Female

DRUGS (2)
  1. HUMIRA [Suspect]
     Indication: RHEUMATOID ARTHRITIS
     Route: 058
     Dates: start: 20091224
  2. HUMIRA [Suspect]
     Route: 058
     Dates: start: 20091014, end: 20091224

REACTIONS (5)
  - INJECTION SITE HAEMATOMA [None]
  - DRUG INEFFECTIVE [None]
  - INJECTION SITE PRURITUS [None]
  - PAIN [None]
  - INJECTION SITE ERYTHEMA [None]
